FAERS Safety Report 8193905-X (Version None)
Quarter: 2012Q1

REPORT INFORMATION
  Report Type: 
  Country: None (occurrence: None)
  Receive Date: 20120308
  Receipt Date: 20120302
  Transmission Date: 20120608
  Serious: Yes (Death, Hospitalization)
  Sender: FDA-Public Use
  Company Number: US-ELI_LILLY_AND_COMPANY-US201201001379

PATIENT
  Sex: Female
  Weight: 65.76 kg

DRUGS (1)
  1. ADCIRCA [Suspect]
     Dosage: 20 MG, UNK

REACTIONS (3)
  - DEATH [None]
  - PNEUMONIA [None]
  - HOSPITALISATION [None]
